FAERS Safety Report 10335563 (Version 2)
Quarter: 2014Q3

REPORT INFORMATION
  Report Type: Spontaneous
  Country: US (occurrence: US)
  Receive Date: 20140723
  Receipt Date: 20140723
  Transmission Date: 20150326
  Serious: No
  Sender: FDA-Public Use
  Company Number: US-UNITED THERAPEUTICS-UTC-047653

PATIENT
  Sex: Female
  Weight: 75.29 kg

DRUGS (2)
  1. REMODULIN [Suspect]
     Active Substance: TREPROSTINIL
     Dosage: 0.03 UG/KG/MIN
     Route: 058
     Dates: start: 20140313
  2. WARFARIN [Concomitant]
     Active Substance: WARFARIN

REACTIONS (6)
  - Headache [Recovering/Resolving]
  - Nausea [Unknown]
  - Hypotension [Unknown]
  - Weight decreased [Unknown]
  - Vomiting [Unknown]
  - Diarrhoea [Unknown]

NARRATIVE: CASE EVENT DATE: 2014
